FAERS Safety Report 15995070 (Version 2)
Quarter: 2019Q1

REPORT INFORMATION
  Report Type: Spontaneous
  Country: JP (occurrence: JP)
  Receive Date: 20190222
  Receipt Date: 20190307
  Transmission Date: 20190418
  Serious: Yes (Other)
  Sender: FDA-Public Use
  Company Number: JP-BAUSCH-BL-2019-005600

PATIENT
  Age: 47 Year
  Sex: Male

DRUGS (8)
  1. OXALIPLATIN. [Suspect]
     Active Substance: OXALIPLATIN
     Indication: METASTASES TO LYMPH NODES
     Dosage: QCY
     Route: 065
  2. FOLINIC ACID [Suspect]
     Active Substance: LEUCOVORIN
     Indication: METASTASES TO LYMPH NODES
     Dosage: QCY
     Route: 065
  3. FOLINIC ACID [Suspect]
     Active Substance: LEUCOVORIN
     Indication: RECTAL CANCER
  4. BEVACIZUMAB. [Suspect]
     Active Substance: BEVACIZUMAB
     Indication: RECTAL CANCER
  5. BEVACIZUMAB. [Suspect]
     Active Substance: BEVACIZUMAB
     Indication: METASTASES TO LYMPH NODES
     Dosage: QCY
     Route: 065
  6. FLUOROURACIL. [Suspect]
     Active Substance: FLUOROURACIL
     Indication: METASTASES TO LYMPH NODES
     Dosage: QCY
     Route: 065
  7. OXALIPLATIN. [Suspect]
     Active Substance: OXALIPLATIN
     Indication: RECTAL CANCER
  8. FLUOROURACIL. [Suspect]
     Active Substance: FLUOROURACIL
     Indication: RECTAL CANCER

REACTIONS (1)
  - Anastomotic fistula [Unknown]
